FAERS Safety Report 25389138 (Version 1)
Quarter: 2025Q2

REPORT INFORMATION
  Report Type: Spontaneous
  Country: US (occurrence: US)
  Receive Date: 20250603
  Receipt Date: 20250603
  Transmission Date: 20250717
  Serious: No
  Sender: Haleon PLC
  Company Number: US-HALEON-2245215

PATIENT
  Age: 79 Year
  Sex: Female

DRUGS (1)
  1. TUMS EXTRA STRENGTH, SMOOTHIES [Suspect]
     Active Substance: CALCIUM CARBONATE
     Indication: Mineral supplementation

REACTIONS (2)
  - Constipation [Not Recovered/Not Resolved]
  - Expired product administered [Not Recovered/Not Resolved]
